FAERS Safety Report 6252922-7 (Version None)
Quarter: 2009Q3

REPORT INFORMATION
  Report Type: 
  Country: None (occurrence: None)
  Receive Date: 20090701
  Receipt Date: 20090624
  Transmission Date: 20100115
  Serious: Yes (Other)
  Sender: FDA-Public Use
  Company Number: A0793517A

PATIENT
  Sex: Male

DRUGS (2)
  1. LAMICTAL [Suspect]
     Indication: BIPOLAR DISORDER
     Dosage: 200MG TWICE PER DAY
     Route: 048
  2. TOPAMAX [Concomitant]

REACTIONS (4)
  - EATING DISORDER [None]
  - INSOMNIA [None]
  - MEDICATION ERROR [None]
  - PARTIAL SEIZURES [None]
